FAERS Safety Report 21550890 (Version 1)
Quarter: 2022Q4

REPORT INFORMATION
  Report Type: Spontaneous
  Country: US (occurrence: US)
  Receive Date: 20221103
  Receipt Date: 20221103
  Transmission Date: 20230113
  Serious: Yes (Other)
  Sender: FDA-Public Use
  Company Number: US-BEH-2022151481

PATIENT
  Sex: Female

DRUGS (10)
  1. HAEGARDA [Suspect]
     Active Substance: HUMAN C1-ESTERASE INHIBITOR
     Indication: Hereditary angioedema
     Dosage: 4000 INTERNATIONAL UNIT EVERY 3 DAYS
     Route: 058
  2. HAEGARDA [Suspect]
     Active Substance: HUMAN C1-ESTERASE INHIBITOR
     Indication: Prophylaxis
  3. LEVOMEFOLIC ACID [Concomitant]
     Active Substance: LEVOMEFOLIC ACID
  4. ARMOUR THYROID [Concomitant]
     Active Substance: THYROID, PORCINE
  5. HORIZANT [Concomitant]
     Active Substance: GABAPENTIN ENACARBIL
  6. IRON [Concomitant]
     Active Substance: IRON
  7. FISH OIL [Concomitant]
     Active Substance: FISH OIL
  8. SERTRALINE HYDROCHLORIDE [Concomitant]
     Active Substance: SERTRALINE HYDROCHLORIDE
  9. VITAMIN D3 [Concomitant]
     Active Substance: CHOLECALCIFEROL
  10. MENADIONE [Concomitant]
     Active Substance: MENADIONE

REACTIONS (1)
  - Hereditary angioedema [Not Recovered/Not Resolved]
